FAERS Safety Report 25527098 (Version 1)
Quarter: 2025Q3

REPORT INFORMATION
  Report Type: Spontaneous
  Country: US (occurrence: US)
  Receive Date: 20250708
  Receipt Date: 20250708
  Transmission Date: 20251021
  Serious: Yes (Death, Life-Threatening, Hospitalization)
  Sender: ACCORD
  Company Number: US-MLMSERVICE-20250620-PI549580-00050-1

PATIENT
  Age: 64 Year
  Sex: Female

DRUGS (4)
  1. AMLODIPINE [Interacting]
     Active Substance: AMLODIPINE BESYLATE
     Dosage: CONSUMED LARGE AMOUNT IN THE MORNING ON THE DAY BEFORE SHE CAME TO THE HOSPITAL
     Route: 048
  2. APIXABAN [Suspect]
     Active Substance: APIXABAN
     Dosage: CONSUMED LARGE AMOUNT IN THE MORNING ON THE DAY BEFORE SHE CAME TO THE HOSPITAL
     Route: 048
  3. TORSEMIDE [Interacting]
     Active Substance: TORSEMIDE
     Dosage: CONSUMED LARGE AMOUNT IN THE MORNING ON THE DAY BEFORE SHE CAME TO THE HOSPITAL
     Route: 048
  4. SERTRALINE [Concomitant]
     Active Substance: SERTRALINE HYDROCHLORIDE
     Dosage: BY MOUTH AT BEDTIME
     Route: 048

REACTIONS (8)
  - Intentional overdose [Fatal]
  - Acute kidney injury [Fatal]
  - Overdose [Fatal]
  - Hypotension [Fatal]
  - Hypovolaemia [Fatal]
  - Renal ischaemia [Fatal]
  - Completed suicide [Fatal]
  - Drug interaction [Fatal]
